FAERS Safety Report 9733358 (Version 2)
Quarter: 2013Q4

REPORT INFORMATION
  Report Type: Spontaneous
  Country: JP (occurrence: JP)
  Receive Date: 20131204
  Receipt Date: 20131204
  Transmission Date: 20140711
  Serious: Yes (Death, Life-Threatening, Hospitalization, Other)
  Sender: FDA-Public Use
  Company Number: JP-ROCHE-792542

PATIENT
  Age: 64 Year
  Sex: Female
  Weight: 55 kg

DRUGS (11)
  1. AVASTIN [Suspect]
     Indication: RECTAL CANCER METASTATIC
     Route: 041
     Dates: start: 20110704, end: 20110704
  2. AVASTIN [Suspect]
     Indication: RECTAL CANCER METASTATIC
     Dosage: DOSAGE IS UNCERTAIN.
     Route: 041
  3. XELODA [Suspect]
     Indication: RECTAL CANCER METASTATIC
     Dosage: DRUG REPORTED AS: XELODA 300
     Route: 048
     Dates: start: 20110704, end: 20110715
  4. ELPLAT [Suspect]
     Indication: RECTAL CANCER METASTATIC
     Dosage: DOSAGE IS UNCERTAIN.
     Route: 041
     Dates: start: 20110704, end: 20110704
  5. DAIKENCHUTO [Concomitant]
     Indication: GASTROINTESTINAL MOTILITY DISORDER
     Dosage: DOSE FORM  :GRANULATED POWDER.
     Route: 048
     Dates: start: 20110610, end: 20110715
  6. DECADRON [Concomitant]
     Indication: PROPHYLAXIS
     Route: 065
     Dates: start: 20110704, end: 20110704
  7. ALOXI [Concomitant]
     Indication: PROPHYLAXIS
     Route: 042
     Dates: start: 20110704, end: 20110704
  8. CALCICOL [Concomitant]
     Indication: PROPHYLAXIS
     Route: 042
     Dates: start: 20110704, end: 20110704
  9. PYDOXAL [Concomitant]
     Indication: PROPHYLAXIS
     Route: 048
     Dates: start: 20110704, end: 20110715
  10. MAGMITT [Concomitant]
     Indication: POST PROCEDURAL CONSTIPATION
     Dosage: IT ADJUSTS IT BY THE SELF.
     Route: 048
  11. IRINOTECAN HYDROCHLORIDE [Concomitant]
     Indication: RECTAL CANCER METASTATIC
     Dosage: DOSAGE IS UNCERTAIN.
     Route: 041

REACTIONS (14)
  - Death [Fatal]
  - Diarrhoea [Not Recovered/Not Resolved]
  - Neutrophil count decreased [Recovered/Resolved]
  - Platelet count decreased [Recovered/Resolved]
  - Melaena [Not Recovered/Not Resolved]
  - White blood cell count decreased [Recovered/Resolved]
  - Cytomegalovirus enterocolitis [Recovered/Resolved]
  - Colitis [Recovered/Resolved]
  - Vomiting [Recovering/Resolving]
  - Abdominal pain [Not Recovered/Not Resolved]
  - Decreased appetite [Recovering/Resolving]
  - Pyrexia [Not Recovered/Not Resolved]
  - Nausea [Recovering/Resolving]
  - Haemoglobin decreased [Unknown]
